FAERS Safety Report 9107623 (Version 1)
Quarter: 2013Q1

REPORT INFORMATION
  Report Type: Report from Study
  Country: CZ (occurrence: CZ)
  Receive Date: 20130221
  Receipt Date: 20130221
  Transmission Date: 20140127
  Serious: Yes (Hospitalization)
  Sender: FDA-Public Use
  Company Number: CZ-ROCHE-1192749

PATIENT
  Sex: 0

DRUGS (6)
  1. BEVACIZUMAB [Suspect]
     Indication: COLORECTAL CANCER
     Route: 042
  2. CAPECITABINE [Suspect]
     Indication: COLORECTAL CANCER
     Route: 065
  3. OXALIPLATIN [Suspect]
     Indication: COLORECTAL CANCER
     Dosage: FLAT DOSE FOR 1-2 H,
     Route: 065
  4. OXALIPLATIN [Suspect]
     Dosage: FLAT DOSE FOR 1-2 H,
     Route: 065
  5. LEUCOVORIN [Suspect]
     Indication: COLORECTAL CANCER
     Dosage: 50-100 MG SLOW BOLUS
     Route: 065
  6. 5-FU [Suspect]
     Indication: COLORECTAL CANCER
     Dosage: 500-750 MG/ME2
     Route: 065

REACTIONS (15)
  - Thrombocytopenia [Unknown]
  - Nausea [Unknown]
  - Vomiting [Unknown]
  - Diarrhoea [Unknown]
  - Pneumonia [Unknown]
  - Haemorrhage [Unknown]
  - Dehydration [Unknown]
  - Sepsis [Unknown]
  - Medical device complication [Unknown]
  - Neutropenia [Unknown]
  - Anaemia [Unknown]
  - Neuropathy peripheral [Unknown]
  - Hypersensitivity [Unknown]
  - Abdominal pain [Unknown]
  - Chest pain [Unknown]
